FAERS Safety Report 8784335 (Version 2)
Quarter: 2012Q4

REPORT INFORMATION
  Report Type: Report from Study
  Country: JP (occurrence: JP)
  Receive Date: 20120913
  Receipt Date: 20121115
  Transmission Date: 20130627
  Serious: Yes (Other)
  Sender: FDA-Public Use
  Company Number: JP-VERTEX PHARMACEUTICAL INC.-AE-2012-004360

PATIENT
  Age: 65 Year
  Sex: Female

DRUGS (23)
  1. VX-950 (TELAPREVIR) [Suspect]
     Indication: CHRONIC HEPATITIS C
     Dosage: 1500 mg, qd
     Route: 048
     Dates: start: 20120315, end: 20120321
  2. VX-950 (TELAPREVIR) [Suspect]
     Dosage: 1500 mg, qd
     Route: 048
     Dates: start: 20120329, end: 20120612
  3. PEGINTRON                          /01543001/ [Suspect]
     Indication: CHRONIC HEPATITIS C
     Dosage: 1.26 ?g/kg, weekly
     Route: 058
     Dates: start: 20120315, end: 20120315
  4. PEGINTRON                          /01543001/ [Suspect]
     Dosage: 0.94 ?g/kg, weekly
     Route: 058
     Dates: start: 20120329, end: 20120329
  5. PEGINTRON                          /01543001/ [Suspect]
     Dosage: 0.47 ?g/kg, weekly
     Route: 058
     Dates: start: 20120405, end: 20120516
  6. PEGINTRON                          /01543001/ [Suspect]
     Dosage: 0.55 ?g/kg, weekly
     Route: 058
     Dates: start: 20120530, end: 20120530
  7. PEGINTRON                          /01543001/ [Suspect]
     Dosage: 0.39 ?g/kg, weekly
     Route: 058
     Dates: start: 20120606, end: 20120620
  8. PEGINTRON                          /01543001/ [Suspect]
     Dosage: 0.39 ?g/kg, weekly
     Route: 058
     Dates: start: 20120726, end: 20120816
  9. PEGINTRON                          /01543001/ [Suspect]
     Dosage: .47 ?g/kg, weekly
     Route: 058
     Dates: start: 20120823, end: 20120823
  10. PEGINTRON                          /01543001/ [Suspect]
     Dosage: 0.55 ?g/kg, weekly
     Route: 058
     Dates: start: 20120830, end: 20120830
  11. PEGINTRON                          /01543001/ [Suspect]
     Dosage: 0.63 ?g/kg, weekly
     Route: 058
     Dates: start: 20120906, end: 20121003
  12. REBETOL [Suspect]
     Indication: CHRONIC HEPATITIS C
     Dosage: 600 mg, qd
     Route: 048
     Dates: start: 20120315, end: 20120321
  13. REBETOL [Suspect]
     Dosage: 600 mg, qd
     Route: 048
     Dates: start: 20120329, end: 20120424
  14. REBETOL [Suspect]
     Dosage: 400 mg, qd
     Route: 048
     Dates: start: 20120425, end: 20120606
  15. REBETOL [Suspect]
     Dosage: 200 mg, qd
     Route: 048
     Dates: start: 20120606, end: 20120626
  16. REBETOL [Suspect]
     Dosage: 200 mg, qd
     Route: 048
     Dates: start: 20120726, end: 20120801
  17. REBETOL [Suspect]
     Dosage: 400 mg, qd
     Route: 048
     Dates: start: 20120802, end: 20120829
  18. REBETOL [Suspect]
     Dosage: 600 mg, qd
     Route: 048
     Dates: start: 20120830, end: 20121009
  19. URSO                               /00465701/ [Concomitant]
     Dosage: 600 mg, UNK
     Route: 048
  20. TAKEPRON [Concomitant]
     Dosage: 15 mg, qd
     Route: 048
     Dates: start: 20120319
  21. PRIMPERAN [Concomitant]
     Dosage: 5 mg, prn
     Route: 048
     Dates: start: 20120319
  22. PRIMPERAN [Concomitant]
     Dosage: 5 mg, qd
     Route: 048
     Dates: end: 20120502
  23. PROMAC                             /01312301/ [Concomitant]
     Dosage: 150 mg, qd
     Route: 048
     Dates: start: 20120509

REACTIONS (2)
  - White blood cell count decreased [Recovered/Resolved]
  - Neutrophil count decreased [Recovered/Resolved]
